FAERS Safety Report 20849497 (Version 1)
Quarter: 2022Q2

REPORT INFORMATION
  Report Type: Report from Study
  Country: US (occurrence: US)
  Receive Date: 20220519
  Receipt Date: 20220519
  Transmission Date: 20220721
  Serious: Yes (Other)
  Sender: FDA-Public Use
  Company Number: US-PFIZER INC-202200697084

PATIENT
  Age: 13 Month
  Sex: Female

DRUGS (16)
  1. CARBOPLATIN [Suspect]
     Active Substance: CARBOPLATIN
     Indication: Chemotherapy
     Dosage: UNK, CYCLIC (3CYCLE)
  2. CARBOPLATIN [Suspect]
     Active Substance: CARBOPLATIN
     Indication: Neoplasm
  3. CARBOPLATIN [Suspect]
     Active Substance: CARBOPLATIN
     Indication: Neoplasm
  4. VINCRISTINE SULFATE [Suspect]
     Active Substance: VINCRISTINE SULFATE
     Dosage: UNK UNK, CYCLIC
  5. THIOTEPA [Suspect]
     Active Substance: THIOTEPA
     Indication: Chemotherapy
     Dosage: UNK, CYCLIC (3CYCLE)
  6. THIOTEPA [Suspect]
     Active Substance: THIOTEPA
     Indication: Neoplasm
  7. THIOTEPA [Suspect]
     Active Substance: THIOTEPA
     Indication: Neoplasm
  8. ETOPOSIDE [Suspect]
     Active Substance: ETOPOSIDE
     Indication: Chemotherapy
     Dosage: UNK, CYCLIC
  9. ETOPOSIDE [Suspect]
     Active Substance: ETOPOSIDE
     Indication: Neoplasm
  10. ETOPOSIDE [Suspect]
     Active Substance: ETOPOSIDE
     Indication: Neoplasm
  11. CYCLOPHOSPHAMIDE [Suspect]
     Active Substance: CYCLOPHOSPHAMIDE
     Indication: Chemotherapy
     Dosage: UNK, CYCLIC
  12. CYCLOPHOSPHAMIDE [Suspect]
     Active Substance: CYCLOPHOSPHAMIDE
     Indication: Neoplasm
  13. CYCLOPHOSPHAMIDE [Suspect]
     Active Substance: CYCLOPHOSPHAMIDE
     Indication: Neoplasm
  14. CISPLATIN [Suspect]
     Active Substance: CISPLATIN
     Indication: Chemotherapy
     Dosage: UNK, CYCLIC
  15. CISPLATIN [Suspect]
     Active Substance: CISPLATIN
     Indication: Neoplasm
  16. CISPLATIN [Suspect]
     Active Substance: CISPLATIN
     Indication: Neoplasm

REACTIONS (5)
  - Febrile neutropenia [Recovering/Resolving]
  - Pseudomonal bacteraemia [Recovering/Resolving]
  - Norovirus infection [Recovering/Resolving]
  - Speech disorder developmental [Unknown]
  - Motor developmental delay [Unknown]
